FAERS Safety Report 10159083 (Version 1)
Quarter: 2014Q2

REPORT INFORMATION
  Report Type: Report from Study
  Country: US (occurrence: US)
  Receive Date: 20140508
  Receipt Date: 20140508
  Transmission Date: 20141212
  Serious: Yes (Hospitalization, Other)
  Sender: FDA-Public Use
  Company Number: US-ROCHE-1397047

PATIENT
  Age: 51 Year
  Sex: Male

DRUGS (4)
  1. PEG-INTERFERON ALFA 2A [Suspect]
     Indication: HEPATITIS C
     Route: 065
  2. RIBAVIRIN [Suspect]
     Indication: HEPATITIS C
     Route: 065
  3. TELAPREVIR [Suspect]
     Indication: HEPATITIS C
     Route: 065
  4. SIROLIMUS [Concomitant]
     Indication: IMMUNOSUPPRESSION
     Route: 065

REACTIONS (3)
  - Anaemia [Unknown]
  - Thrombocytopenia [Recovering/Resolving]
  - Pancytopenia [Unknown]
